FAERS Safety Report 21170137 (Version 2)
Quarter: 2022Q3

REPORT INFORMATION
  Report Type: Spontaneous
  Country: JP (occurrence: JP)
  Receive Date: 20220804
  Receipt Date: 20220824
  Transmission Date: 20221026
  Serious: Yes (Hospitalization)
  Sender: FDA-Public Use
  Company Number: JP-SERVIER-S22007721

PATIENT
  Age: 71 Year
  Sex: Male
  Weight: 42.7 kg

DRUGS (11)
  1. ONIVYDE [Suspect]
     Active Substance: IRINOTECAN HYDROCHLORIDE
     Indication: Pancreatic carcinoma
     Dosage: 109.9 MG, QD
     Route: 041
     Dates: start: 20220525, end: 20220525
  2. ONIVYDE [Suspect]
     Active Substance: IRINOTECAN HYDROCHLORIDE
     Dosage: 109.9 MG, QD
     Route: 041
     Dates: start: 20220606, end: 20220606
  3. LEVOLEUCOVORIN CALCIUM [Suspect]
     Active Substance: LEVOLEUCOVORIN CALCIUM
     Indication: Pancreatic carcinoma
     Dosage: 314 MG, QD
     Route: 041
     Dates: start: 20220525, end: 20220525
  4. LEVOLEUCOVORIN CALCIUM [Suspect]
     Active Substance: LEVOLEUCOVORIN CALCIUM
     Dosage: 314 MG, QD
     Route: 041
     Dates: start: 20220606, end: 20220606
  5. PREDNISOLONE [Concomitant]
     Active Substance: PREDNISOLONE
     Indication: Product used for unknown indication
     Dosage: UNK
     Route: 048
  6. RABEPRAZOLE SODIUM [Concomitant]
     Active Substance: RABEPRAZOLE SODIUM
     Indication: Product used for unknown indication
     Dosage: UNK
     Route: 048
  7. CLOBETASOL [Concomitant]
     Active Substance: CLOBETASOL
     Indication: Product used for unknown indication
     Dosage: UNK
     Route: 062
  8. HEPARINOID [Concomitant]
     Indication: Product used for unknown indication
     Dosage: UNK
     Route: 062
  9. FEXOFENADINE HYDROCHLORIDE [Concomitant]
     Active Substance: FEXOFENADINE HYDROCHLORIDE
     Indication: Product used for unknown indication
     Dosage: UNK
     Route: 048
  10. METOCLOPRAMIDE [Concomitant]
     Active Substance: METOCLOPRAMIDE
     Indication: Product used for unknown indication
     Dosage: UNK
     Route: 048
  11. LOPEMIN [Concomitant]
     Indication: Product used for unknown indication
     Dosage: UNK
     Route: 048

REACTIONS (2)
  - Blood disorder [Recovering/Resolving]
  - Blood electrolytes abnormal [Recovering/Resolving]

NARRATIVE: CASE EVENT DATE: 20220615
